FAERS Safety Report 5193879-X (Version None)
Quarter: 2006Q4

REPORT INFORMATION
  Report Type: 
  Country: None (occurrence: None)
  Receive Date: 20061228
  Receipt Date: 20061220
  Transmission Date: 20070319
  Serious: Yes (Other)
  Sender: FDA-Public Use
  Company Number: AU-AMGEN-US204478

PATIENT
  Sex: Male

DRUGS (1)
  1. ARANESP [Suspect]
     Indication: DIALYSIS
     Route: 065
     Dates: start: 20020809

REACTIONS (2)
  - HAEMOGLOBIN DECREASED [None]
  - THERAPEUTIC RESPONSE DECREASED [None]
